FAERS Safety Report 13875573 (Version 1)
Quarter: 2017Q3

REPORT INFORMATION
  Report Type: Report from Study
  Country: None (occurrence: GR)
  Receive Date: 20170817
  Receipt Date: 20170817
  Transmission Date: 20171127
  Serious: Yes (Death)
  Sender: FDA-Public Use
  Company Number: GR-ABBVIE-17K-066-2070887-00

PATIENT
  Age: 73 Year
  Sex: Male

DRUGS (8)
  1. DUODOPA [Suspect]
     Active Substance: CARBIDOPA\LEVODOPA
     Indication: PARKINSON^S DISEASE
     Dosage: MORNING DOSE:7.0ML; CONTINUOUS RATE:1.3ML/H; EXTRA DOSE:0.5ML
     Route: 050
     Dates: start: 20170622
  2. MACROGOL [Concomitant]
     Active Substance: POLYETHYLENE GLYCOLS
     Indication: CONSTIPATION
     Route: 048
  3. LEXOTANIL [Concomitant]
     Active Substance: BROMAZEPAM
     Indication: INSOMNIA
     Dosage: ONCE AT NOON
     Route: 048
  4. TRITTICO [Concomitant]
     Active Substance: TRAZODONE HYDROCHLORIDE
     Indication: INSOMNIA
     Dosage: ONCE AT NIGHT
     Route: 048
  5. CILROTON [Concomitant]
     Indication: CONSTIPATION
     Route: 048
  6. TROFOCARD [Concomitant]
     Indication: BLOOD MAGNESIUM DECREASED
     Route: 048
  7. EXELON [Concomitant]
     Active Substance: RIVASTIGMINE TARTRATE
     Indication: PARKINSON^S DISEASE
     Route: 062
  8. LOSEC [Concomitant]
     Active Substance: OMEPRAZOLE
     Indication: PRODUCT USED FOR UNKNOWN INDICATION
     Route: 048

REACTIONS (1)
  - Pulmonary oedema [Fatal]

NARRATIVE: CASE EVENT DATE: 20170814
